FAERS Safety Report 8382868-X (Version None)
Quarter: 2012Q2

REPORT INFORMATION
  Report Type: 
  Country: None (occurrence: None)
  Receive Date: 20120524
  Receipt Date: 20120508
  Transmission Date: 20120825
  Serious: Yes (Other)
  Sender: FDA-Public Use
  Company Number: US-JNJFOC-20120509774

PATIENT
  Sex: Female

DRUGS (7)
  1. INVEGA SUSTENNA [Suspect]
     Indication: BIPOLAR I DISORDER
     Route: 042
     Dates: end: 20120508
  2. CLONAZEPAM [Concomitant]
     Route: 065
  3. LAMICTAL [Concomitant]
     Route: 065
  4. INVEGA [Suspect]
     Indication: PRODUCT USED FOR UNKNOWN INDICATION
     Route: 048
  5. WELLBUTRIN [Concomitant]
     Route: 065
  6. COGENTIN [Concomitant]
     Route: 065
  7. TRAZODONE HYDROCHLORIDE [Concomitant]
     Route: 065

REACTIONS (4)
  - PSYCHOTIC DISORDER [None]
  - INCORRECT ROUTE OF DRUG ADMINISTRATION [None]
  - DEPRESSION [None]
  - BLOOD PROLACTIN INCREASED [None]
